FAERS Safety Report 19993030 (Version 1)
Quarter: 2021Q4

REPORT INFORMATION
  Report Type: Spontaneous
  Country: US (occurrence: US)
  Receive Date: 20211025
  Receipt Date: 20211025
  Transmission Date: 20220303
  Serious: No
  Sender: FDA-Public Use
  Company Number: US-ABBVIE-21K-163-3852255-00

PATIENT
  Sex: Female

DRUGS (1)
  1. LUPRON DEPOT [Suspect]
     Active Substance: LEUPROLIDE ACETATE
     Indication: Product used for unknown indication
     Route: 065

REACTIONS (9)
  - Tooth disorder [Unknown]
  - Tooth loss [Unknown]
  - Endometriosis [Unknown]
  - Polycystic ovaries [Unknown]
  - Haemorrhage [Unknown]
  - Mood swings [Unknown]
  - Anaemia [Unknown]
  - Arthralgia [Unknown]
  - Hot flush [Unknown]
